FAERS Safety Report 25228626 (Version 3)
Quarter: 2025Q4

REPORT INFORMATION
  Report Type: Spontaneous
  Country: US (occurrence: US)
  Receive Date: 20250423
  Receipt Date: 20251030
  Transmission Date: 20260119
  Serious: Yes (Other)
  Sender: CSL BEHRING
  Company Number: US-BEH-2025202228

PATIENT
  Sex: Female

DRUGS (5)
  1. PRIVIGEN [Suspect]
     Active Substance: HUMAN IMMUNOGLOBULIN G
     Indication: Immunodeficiency common variable
     Dosage: 20 G, QMT
     Route: 042
     Dates: start: 202208
  2. PRIVIGEN [Suspect]
     Active Substance: HUMAN IMMUNOGLOBULIN G
     Dosage: 10 G, QMT
     Route: 042
     Dates: start: 202208
  3. PRIVIGEN [Suspect]
     Active Substance: HUMAN IMMUNOGLOBULIN G
     Dosage: 30 G, QMT
     Route: 042
     Dates: start: 202208
  4. DIPHENHYDRAMINE [Concomitant]
     Active Substance: DIPHENHYDRAMINE
     Indication: Hypersensitivity
  5. ACETAMINOPHEN [Concomitant]
     Active Substance: ACETAMINOPHEN

REACTIONS (10)
  - Hepatic cirrhosis [Unknown]
  - Enlarged uvula [Unknown]
  - Pollakiuria [Unknown]
  - Weight increased [Unknown]
  - Headache [Unknown]
  - Abdominal pain upper [Unknown]
  - Platelet count decreased [Unknown]
  - Hiatus hernia [Unknown]
  - Urine output decreased [Unknown]
  - Urine output decreased [Unknown]
